FAERS Safety Report 10082128 (Version 1)
Quarter: 2014Q2

REPORT INFORMATION
  Report Type: Spontaneous
  Country: SG (occurrence: SG)
  Receive Date: 20140416
  Receipt Date: 20140416
  Transmission Date: 20141212
  Serious: Yes (Hospitalization, Other)
  Sender: FDA-Public Use
  Company Number: SG-WATSON-2014-07306

PATIENT
  Age: 86 Year
  Sex: Female

DRUGS (1)
  1. ALENDRONIC ACID (UNKNOWN) [Suspect]
     Indication: OSTEOPOROSIS
     Dosage: 70 MG, 1/WEEK
     Route: 065

REACTIONS (1)
  - Atypical femur fracture [Unknown]
